FAERS Safety Report 6093028-X (Version None)
Quarter: 2009Q1

REPORT INFORMATION
  Report Type: 
  Country: None (occurrence: None)
  Receive Date: 20090224
  Receipt Date: 20090210
  Transmission Date: 20090719
  Serious: Yes (Hospitalization, Other)
  Sender: FDA-Public Use
  Company Number: 2009000389

PATIENT
  Sex: Male

DRUGS (1)
  1. ERLOTINIB (ERLOTINIB) (TABLET) (ERLOTINIB) [Suspect]
     Indication: LUNG NEOPLASM MALIGNANT
     Dosage: ORAL
     Route: 048

REACTIONS (5)
  - DEHYDRATION [None]
  - DELIRIUM [None]
  - DYSPNOEA [None]
  - OROPHARYNGITIS FUNGAL [None]
  - URINARY TRACT INFECTION [None]
